FAERS Safety Report 6574949-8 (Version None)
Quarter: 2010Q1

REPORT INFORMATION
  Report Type: 
  Country: None (occurrence: None)
  Receive Date: 20100209
  Receipt Date: 20100201
  Transmission Date: 20100710
  Serious: Yes (Hospitalization, Other)
  Sender: FDA-Public Use
  Company Number: PHHY2009GB54954

PATIENT
  Sex: Male

DRUGS (1)
  1. CLOZARIL [Suspect]
     Dosage: UNK

REACTIONS (3)
  - CATATONIA [None]
  - LOWER RESPIRATORY TRACT INFECTION [None]
  - SCHIZOPHRENIA [None]
